FAERS Safety Report 23206376 (Version 2)
Quarter: 2023Q4

REPORT INFORMATION
  Report Type: Spontaneous
  Country: FR (occurrence: FR)
  Receive Date: 20231120
  Receipt Date: 20231121
  Transmission Date: 20240109
  Serious: Yes (Other)
  Sender: FDA-Public Use
  Company Number: FR-SANDOZ-SDZ2023FR055662

PATIENT
  Age: 61 Year
  Sex: Male

DRUGS (1)
  1. IRBESARTAN [Suspect]
     Active Substance: IRBESARTAN
     Indication: Product used for unknown indication
     Dosage: 150 MG
     Route: 065

REACTIONS (5)
  - Syncope [Unknown]
  - Substance use disorder [Unknown]
  - Hypotension [Unknown]
  - Self-medication [Unknown]
  - Malaise [Unknown]
